FAERS Safety Report 23832662 (Version 2)
Quarter: 2024Q3

REPORT INFORMATION
  Report Type: Spontaneous
  Country: US (occurrence: US)
  Receive Date: 20240508
  Receipt Date: 20240801
  Transmission Date: 20241017
  Serious: No
  Sender: SANOFI AVENTIS
  Company Number: US-SA-2024SA046772

PATIENT
  Age: 58 Year
  Sex: Female

DRUGS (2)
  1. DUPIXENT [Suspect]
     Active Substance: DUPILUMAB
     Indication: Eczema
     Dosage: 600 MG, 1X
     Route: 058
     Dates: start: 202312, end: 202312
  2. DUPIXENT [Suspect]
     Active Substance: DUPILUMAB
     Dosage: 300 MG, QOW
     Route: 058

REACTIONS (6)
  - Pruritus [Unknown]
  - Eczema [Not Recovered/Not Resolved]
  - Skin exfoliation [Not Recovered/Not Resolved]
  - Dry skin [Recovered/Resolved]
  - Rash [Recovered/Resolved]
  - Therapeutic response decreased [Unknown]

NARRATIVE: CASE EVENT DATE: 20240708
